FAERS Safety Report 10069275 (Version 2)
Quarter: 2014Q2

REPORT INFORMATION
  Report Type: Spontaneous
  Country: US (occurrence: US)
  Receive Date: 20140409
  Receipt Date: 20140409
  Transmission Date: 20141212
  Serious: No
  Sender: FDA-Public Use
  Company Number: US-ASTELLAS-2013US008522

PATIENT
  Sex: Female

DRUGS (1)
  1. PROTOPIC [Suspect]
     Indication: LICHEN PLANUS
     Dosage: 0.1 %, UNKNOWN/D
     Route: 061
     Dates: start: 20130730, end: 20130731

REACTIONS (4)
  - Off label use [Unknown]
  - Drug intolerance [Not Recovered/Not Resolved]
  - Application site pain [Recovered/Resolved]
  - Application site pruritus [Recovered/Resolved]
